FAERS Safety Report 10716140 (Version 1)
Quarter: 2015Q1

REPORT INFORMATION
  Report Type: Spontaneous
  Country: US (occurrence: US)
  Receive Date: 20150116
  Receipt Date: 20150116
  Transmission Date: 20150721
  Serious: No
  Sender: FDA-Public Use
  Company Number: US-BAYER-2015-006003

PATIENT
  Age: 21 Year
  Sex: Female

DRUGS (5)
  1. ALEVE [Suspect]
     Active Substance: NAPROXEN SODIUM
     Indication: PELVIC PAIN
     Dosage: UNK
     Route: 048
  2. ALEVE [Suspect]
     Active Substance: NAPROXEN SODIUM
     Indication: MUSCLE SPASMS
  3. TRAMADOL [Suspect]
     Active Substance: TRAMADOL
     Indication: PELVIC PAIN
     Dosage: UNK
     Route: 048
     Dates: start: 20150105
  4. TORADOL [Suspect]
     Active Substance: KETOROLAC TROMETHAMINE
     Indication: PAIN
     Dosage: UNK
     Route: 048
     Dates: start: 20150103
  5. TRAMADOL [Suspect]
     Active Substance: TRAMADOL
     Indication: MUSCLE SPASMS

REACTIONS (1)
  - Drug ineffective [Unknown]
